FAERS Safety Report 12364402 (Version 1)
Quarter: 2016Q2

REPORT INFORMATION
  Report Type: Spontaneous
  Country: US (occurrence: None)
  Receive Date: 20160512
  Receipt Date: 20160512
  Transmission Date: 20160815
  Serious: Yes (Other)
  Sender: FDA-Public Use
  Company Number: None

PATIENT
  Age: 16 Year
  Sex: Female
  Weight: 68.04 kg

DRUGS (5)
  1. METOPROLOL. [Concomitant]
     Active Substance: METOPROLOL
  2. LATUDA [Concomitant]
     Active Substance: LURASIDONE HYDROCHLORIDE
  3. TRI-ESTARYLLA [Concomitant]
     Active Substance: ETHINYL ESTRADIOL\NORGESTIMATE
  4. DULOXETINE HCL DR, 60 MG PRASCO LABS [Suspect]
     Active Substance: DULOXETINE HYDROCHLORIDE
     Indication: DEPRESSION
     Route: 048
     Dates: start: 20160425, end: 20160429
  5. KLONOPIN [Concomitant]
     Active Substance: CLONAZEPAM

REACTIONS (5)
  - Rash pruritic [None]
  - Chest pain [None]
  - Dysphagia [None]
  - Rash erythematous [None]
  - Hypersensitivity [None]

NARRATIVE: CASE EVENT DATE: 20160430
